FAERS Safety Report 25599376 (Version 2)
Quarter: 2025Q3

REPORT INFORMATION
  Report Type: Spontaneous
  Country: JP (occurrence: JP)
  Receive Date: 20250724
  Receipt Date: 20250930
  Transmission Date: 20251020
  Serious: Yes (Other)
  Sender: MERCK SHARP & DOHME LLC
  Company Number: JP-009507513-2309418

PATIENT
  Age: 64 Year
  Sex: Female
  Weight: 51 kg

DRUGS (9)
  1. KEYTRUDA [Suspect]
     Active Substance: PEMBROLIZUMAB
     Indication: Cervix carcinoma
     Route: 041
     Dates: start: 20250507, end: 20250618
  2. PACLITAXEL [Concomitant]
     Active Substance: PACLITAXEL
  3. GRANISETRON [Concomitant]
     Active Substance: GRANISETRON
  4. GASTER [Concomitant]
     Active Substance: FAMOTIDINE
  5. CALONAL [Concomitant]
     Active Substance: ACETAMINOPHEN
  6. CARBOPLATIN [Concomitant]
     Active Substance: CARBOPLATIN
  7. DECADRON [Concomitant]
     Active Substance: DEXAMETHASONE
  8. DIPHENHYDRAMINE [Concomitant]
     Active Substance: DIPHENHYDRAMINE
  9. APREPITANT [Concomitant]
     Active Substance: APREPITANT

REACTIONS (2)
  - Immune-mediated hepatic disorder [Unknown]
  - Immune-mediated myositis [Unknown]

NARRATIVE: CASE EVENT DATE: 20250708
